FAERS Safety Report 24026335 (Version 2)
Quarter: 2024Q3

REPORT INFORMATION
  Report Type: Report from Study
  Country: RS (occurrence: RS)
  Receive Date: 20240628
  Receipt Date: 20240710
  Transmission Date: 20241016
  Serious: No
  Sender: ROCHE
  Company Number: RS-ROCHE-3529836

PATIENT
  Age: 56 Year
  Sex: Female
  Weight: 91.0 kg

DRUGS (2)
  1. ALECTINIB [Suspect]
     Active Substance: ALECTINIB
     Indication: Non-small cell lung cancer metastatic
     Route: 048
     Dates: start: 20220617
  2. ALECTINIB [Suspect]
     Active Substance: ALECTINIB
     Route: 065
     Dates: start: 20211115

REACTIONS (5)
  - Headache [Recovered/Resolved]
  - Gait disturbance [Recovered/Resolved]
  - Constipation [Recovered/Resolved]
  - Fatigue [Recovered/Resolved]
  - Cough [Not Recovered/Not Resolved]

NARRATIVE: CASE EVENT DATE: 20240102
